FAERS Safety Report 21626935 (Version 1)
Quarter: 2022Q4

REPORT INFORMATION
  Report Type: Spontaneous
  Country: US (occurrence: None)
  Receive Date: 20221121
  Receipt Date: 20221121
  Transmission Date: 20230112
  Serious: No
  Sender: FDA-Public Use
  Company Number: None

PATIENT
  Sex: Female

DRUGS (1)
  1. DIMETHYL FUMARATE [Suspect]
     Active Substance: DIMETHYL FUMARATE
     Dosage: FREQUENCY : TWICE A DAY;?
     Route: 048

REACTIONS (10)
  - Fall [None]
  - Lower limb fracture [None]
  - Headache [None]
  - Arthralgia [None]
  - Burning sensation [None]
  - Eye pain [None]
  - Eye swelling [None]
  - Breast swelling [None]
  - Therapy interrupted [None]
  - Flank pain [None]
